FAERS Safety Report 11390989 (Version 1)
Quarter: 2015Q3

REPORT INFORMATION
  Report Type: Spontaneous
  Country: TN (occurrence: None)
  Receive Date: 20150813
  Receipt Date: 20150813
  Transmission Date: 20151125
  Serious: Yes (Other)
  Sender: FDA-Public Use
  Company Number: NSR_02210_2015

PATIENT
  Age: 35 Year
  Sex: Male

DRUGS (4)
  1. PARACETAMOL [Concomitant]
     Active Substance: ACETAMINOPHEN
  2. TRAMADOL (TRAMADOL) [Suspect]
     Active Substance: TRAMADOL
     Dates: start: 2012
  3. ACETAMINOPHEN. [Concomitant]
     Active Substance: ACETAMINOPHEN
  4. CLORAZEPATE [Concomitant]
     Active Substance: CLORAZEPATE DIPOTASSIUM

REACTIONS (6)
  - Delusion [None]
  - Psychotic disorder [None]
  - Hallucinations, mixed [None]
  - Insomnia [None]
  - Drug withdrawal syndrome [None]
  - Restlessness [None]

NARRATIVE: CASE EVENT DATE: 2012
